FAERS Safety Report 5210644-5 (Version None)
Quarter: 2007Q1

REPORT INFORMATION
  Report Type: 
  Country: None (occurrence: None)
  Receive Date: 20070117
  Receipt Date: 20070112
  Transmission Date: 20070707
  Serious: Yes (Hospitalization, Other)
  Sender: FDA-Public Use
  Company Number: DE-BRISTOL-MYERS SQUIBB COMPANY-13601489

PATIENT
  Age: 21 Year
  Sex: Male
  Weight: 70 kg

DRUGS (3)
  1. ABILIFY [Suspect]
     Indication: PSYCHOTIC DISORDER
  2. TETRAHYDROCANNABINOL [Suspect]
     Dates: start: 20061124, end: 20061125
  3. METHAMPHETAMINE HCL [Suspect]
     Dates: start: 20061124, end: 20061125

REACTIONS (11)
  - CONJUNCTIVAL HYPERAEMIA [None]
  - DRUG ABUSER [None]
  - ERYTHEMA [None]
  - INSOMNIA [None]
  - MYDRIASIS [None]
  - NAUSEA [None]
  - OVERDOSE [None]
  - PAIN [None]
  - PALPITATIONS [None]
  - RESTLESSNESS [None]
  - VERTIGO [None]
